FAERS Safety Report 9672080 (Version 1)
Quarter: 2013Q4

REPORT INFORMATION
  Report Type: Report from Study
  Country: KR (occurrence: KR)
  Receive Date: 20131106
  Receipt Date: 20131106
  Transmission Date: 20140711
  Serious: Yes (Death)
  Sender: FDA-Public Use
  Company Number: KR-PFIZER INC-2013311591

PATIENT
  Age: 21 Year
  Sex: Female

DRUGS (4)
  1. CARBOPLATIN [Suspect]
     Indication: MEDULLOBLASTOMA
     Dosage: 500 MG/M2, CYCLIC, ON DAYS -8 TO -6
  2. ETOPOSIDE [Suspect]
     Indication: MEDULLOBLASTOMA
     Dosage: 250 MG/M2, CYCLIC, ON DAYS -5 TO -3
  3. THIOTEPA [Suspect]
     Indication: MEDULLOBLASTOMA
     Dosage: 300 MG/M2, CYCLIC, ON DAYS -5 TO -3
  4. FILGRASTIM [Concomitant]

REACTIONS (1)
  - Septic shock [Fatal]
